FAERS Safety Report 4931671-9 (Version None)
Quarter: 2006Q1

REPORT INFORMATION
  Report Type: 
  Country: None (occurrence: None)
  Receive Date: 20060303
  Receipt Date: 20051230
  Transmission Date: 20060701
  Serious: Yes (Other)
  Sender: FDA-Public Use
  Company Number: US-BRISTOL-MYERS SQUIBB COMPANY-13233069

PATIENT
  Age: 50 Year
  Sex: Female
  Weight: 64 kg

DRUGS (6)
  1. ERBITUX [Suspect]
     Indication: COLON CANCER METASTATIC
     Dosage: HELD ON 30-DEC-2005.
     Route: 042
     Dates: start: 20050101, end: 20050101
  2. ANZEMET [Concomitant]
     Indication: PREMEDICATION
     Dates: start: 20050101, end: 20050101
  3. BENADRYL [Concomitant]
     Indication: PREMEDICATION
     Route: 042
     Dates: start: 20050101, end: 20050101
  4. DECADRON SRC [Concomitant]
     Indication: PREMEDICATION
     Route: 048
     Dates: start: 20050101
  5. IRINOTECAN HCL [Concomitant]
     Indication: COLON CANCER METASTATIC
     Dates: start: 20050101, end: 20050101
  6. TYLENOL (CAPLET) [Concomitant]
     Indication: PREMEDICATION
     Route: 048
     Dates: start: 20050101

REACTIONS (1)
  - DERMATITIS ACNEIFORM [None]
